FAERS Safety Report 5951085-2 (Version None)
Quarter: 2008Q4

REPORT INFORMATION
  Report Type: 
  Country: None (occurrence: None)
  Receive Date: 20081111
  Receipt Date: 20081111
  Transmission Date: 20090506
  Serious: Yes (Other)
  Sender: FDA-Public Use
  Company Number: None

PATIENT
  Age: 55 Year
  Sex: Female
  Weight: 71.2147 kg

DRUGS (1)
  1. LIDOCAINE [Suspect]
     Indication: SPIDER VEIN
     Dosage: ONCE TOP
     Route: 061
     Dates: start: 20081111, end: 20081111

REACTIONS (3)
  - BLOOD PRESSURE INCREASED [None]
  - HEART RATE INCREASED [None]
  - PRODUCT QUALITY ISSUE [None]
